FAERS Safety Report 7418612-X (Version None)
Quarter: 2011Q2

REPORT INFORMATION
  Report Type: 
  Country: None (occurrence: None)
  Receive Date: 20110415
  Receipt Date: 20101029
  Transmission Date: 20111010
  Serious: Yes (Hospitalization, Other)
  Sender: FDA-Public Use
  Company Number: US-BAYER-201021474NA

PATIENT
  Sex: Female

DRUGS (1)
  1. YASMIN [Suspect]
     Indication: PRODUCT USED FOR UNKNOWN INDICATION
     Dosage: UNK UNK, QD
     Route: 048
     Dates: start: 20021004, end: 20030109

REACTIONS (4)
  - DEEP VEIN THROMBOSIS [None]
  - JOINT SWELLING [None]
  - PHLEBITIS SUPERFICIAL [None]
  - VENOUS INSUFFICIENCY [None]
